FAERS Safety Report 8902305 (Version 3)
Quarter: 2013Q1

REPORT INFORMATION
  Report Type: Spontaneous
  Country: IT (occurrence: IT)
  Receive Date: 20121113
  Receipt Date: 20130107
  Transmission Date: 20140127
  Serious: Yes (Hospitalization, Other)
  Sender: FDA-Public Use
  Company Number: PHHY2012IT103959

PATIENT
  Age: 64 Year
  Sex: Female

DRUGS (9)
  1. ACLASTA [Suspect]
     Indication: OSTEOPOROSIS
     Dosage: 5MG/100ML (1 POSOLOGIC UNIT)
     Route: 042
     Dates: start: 20121106
  2. OMEPRAZOLE [Concomitant]
  3. CHOLECALCIFEROL [Concomitant]
     Dosage: 25 DRP, UNK
     Route: 048
  4. BENZODIAZEPINES [Concomitant]
  5. LORMETAZEPAM [Concomitant]
     Dosage: 10 DRP, UNK
  6. ALPRAZOLAM [Concomitant]
     Dosage: 0.25 MG, UNK
     Route: 048
  7. LAROXYL [Concomitant]
     Dosage: 4 DROPS
     Route: 048
  8. LIMPIDEX [Concomitant]
     Dosage: 1 POSOLOGIC UNIT
  9. MOTILEX//CLEBOPRIDE MALEATE [Concomitant]
     Dosage: 0.5 MG, UNK
     Route: 048

REACTIONS (6)
  - Chest pain [Recovered/Resolved]
  - Syncope [Recovered/Resolved]
  - Pyrexia [Recovered/Resolved]
  - Nausea [Recovered/Resolved]
  - Epistaxis [Recovered/Resolved]
  - Loss of consciousness [Recovered/Resolved]
